FAERS Safety Report 26117321 (Version 1)
Quarter: 2025Q4

REPORT INFORMATION
  Report Type: Spontaneous
  Country: MX (occurrence: MX)
  Receive Date: 20251203
  Receipt Date: 20251203
  Transmission Date: 20260118
  Serious: Yes (Hospitalization, Other)
  Sender: SANDOZ
  Company Number: MX-002147023-NVSC2025MX172716

PATIENT
  Sex: Female
  Weight: 45 kg

DRUGS (8)
  1. FULVESTRANT [Suspect]
     Active Substance: FULVESTRANT
     Indication: Breast cancer
     Dosage: 2 DOSAGE FORM, QMO
     Route: 030
     Dates: start: 2023, end: 202510
  2. FULVESTRANT [Suspect]
     Active Substance: FULVESTRANT
     Indication: Metastases to pelvis
  3. KISQALI [Suspect]
     Active Substance: RIBOCICLIB SUCCINATE
     Indication: Breast cancer
     Dosage: 2 DOSAGE FORM, QD (200 MG)
     Route: 048
     Dates: start: 2023, end: 20251020
  4. KISQALI [Suspect]
     Active Substance: RIBOCICLIB SUCCINATE
     Dosage: 2 DOSAGE FORM, Q24H
     Route: 048
     Dates: start: 2024, end: 20251020
  5. KISQALI [Suspect]
     Active Substance: RIBOCICLIB SUCCINATE
     Indication: Metastases to pelvis
     Dosage: 3 DOSAGE FORM, Q24H (200 MG)
     Route: 048
     Dates: start: 2023, end: 2024
  6. ACETAMINOPHEN [Concomitant]
     Active Substance: ACETAMINOPHEN
     Indication: Pelvic pain
     Dosage: 1 DOSAGE FORM, Q8H (TANLET)
     Route: 048
     Dates: start: 2023
  7. SENNOSIDES [Concomitant]
     Active Substance: SENNOSIDES
     Indication: Constipation
     Dosage: 2 DOSAGE FORM, QHS (TABLET)
     Route: 048
     Dates: start: 2023
  8. TRAMADOL [Concomitant]
     Active Substance: TRAMADOL
     Indication: Pelvic pain
     Dosage: 1 DOSAGE FORM, Q8H (TABLET)
     Route: 048
     Dates: start: 2023

REACTIONS (15)
  - Proctitis [Recovering/Resolving]
  - Abdominal pain [Recovering/Resolving]
  - Dehydration [Recovering/Resolving]
  - Vomiting [Unknown]
  - Diarrhoea [Not Recovered/Not Resolved]
  - Nausea [Recovering/Resolving]
  - Metastases to lung [Not Recovered/Not Resolved]
  - Malignant neoplasm progression [Unknown]
  - Breast cancer metastatic [Unknown]
  - Pain [Unknown]
  - Cystitis noninfective [Recovering/Resolving]
  - Osteoporosis [Not Recovered/Not Resolved]
  - Haemoglobin decreased [Recovered/Resolved]
  - Urinary tract infection [Recovering/Resolving]
  - Platelet count decreased [Recovered/Resolved]

NARRATIVE: CASE EVENT DATE: 20240101
